FAERS Safety Report 11080455 (Version 1)
Quarter: 2015Q2

REPORT INFORMATION
  Report Type: Spontaneous
  Country: CA (occurrence: CA)
  Receive Date: 20150430
  Receipt Date: 20150430
  Transmission Date: 20150821
  Serious: Yes (Hospitalization, Other)
  Sender: FDA-Public Use
  Company Number: CA-JNJFOC-20150417797

PATIENT
  Age: 45 Year
  Sex: Female

DRUGS (1)
  1. ACETAMINOPHEN EXTRA STRENGTH [Suspect]
     Active Substance: ACETAMINOPHEN
     Indication: SUICIDE ATTEMPT
     Dosage: 18 EXTRA STRENGTH TABLETS 500MG APPROX 5 HRS AGO IN AN ATTEMPT TO END HER LIFE
     Route: 065

REACTIONS (3)
  - Suicide attempt [Unknown]
  - Overdose [Unknown]
  - Toxicity to various agents [Unknown]
